FAERS Safety Report 16460757 (Version 1)
Quarter: 2019Q2

REPORT INFORMATION
  Report Type: Spontaneous
  Country: US (occurrence: US)
  Receive Date: 20190620
  Receipt Date: 20190620
  Transmission Date: 20190711
  Serious: Yes (Other)
  Sender: FDA-Public Use
  Company Number: US-TEVA-2019-US-1064288

PATIENT
  Age: 24 Year
  Sex: Male

DRUGS (1)
  1. CLONAZEPAM. [Suspect]
     Active Substance: CLONAZEPAM
     Indication: MAST CELL ACTIVATION SYNDROME
     Dosage: ORALLY DISINTEGRATING TABLET, WHICH CONTAINED THE EXCIPIENTS SODIUM LAURYL SULFATE, CROSPOVIDONE,...
     Route: 048

REACTIONS (3)
  - Therapeutic product effect incomplete [Unknown]
  - Reaction to excipient [Unknown]
  - Mast cell activation syndrome [Unknown]
